FAERS Safety Report 14437947 (Version 1)
Quarter: 2018Q1

REPORT INFORMATION
  Report Type: Spontaneous
  Country: US (occurrence: US)
  Receive Date: 20180125
  Receipt Date: 20180125
  Transmission Date: 20180509
  Serious: Yes (Hospitalization)
  Sender: FDA-Public Use
  Company Number: US-ABBVIE-17K-163-1939642-00

PATIENT
  Sex: Female

DRUGS (2)
  1. 6--MERCAPTOPURINE [Concomitant]
     Indication: PRODUCT USED FOR UNKNOWN INDICATION
  2. HUMIRA [Suspect]
     Active Substance: ADALIMUMAB
     Indication: CROHN^S DISEASE
     Route: 058
     Dates: start: 2010

REACTIONS (3)
  - Clostridium difficile colitis [Recovered/Resolved]
  - Crohn^s disease [Recovered/Resolved]
  - Weight decreased [Recovering/Resolving]
